FAERS Safety Report 6723385-X (Version None)
Quarter: 2010Q2

REPORT INFORMATION
  Report Type: 
  Country: None (occurrence: None)
  Receive Date: 20100513
  Receipt Date: 20090618
  Transmission Date: 20101027
  Serious: No
  Sender: FDA-Public Use
  Company Number: US-ABBOTT-09P-163-0580893-00

PATIENT
  Sex: Male
  Weight: 84.898 kg

DRUGS (1)
  1. GENGRAF [Suspect]
     Indication: RHEUMATOID ARTHRITIS
     Route: 048
     Dates: start: 20080408, end: 20090411

REACTIONS (1)
  - RASH GENERALISED [None]
